FAERS Safety Report 9395929 (Version 1)
Quarter: 2013Q3

REPORT INFORMATION
  Report Type: Spontaneous
  Country: KR (occurrence: None)
  Receive Date: 20130708
  Receipt Date: 20130708
  Transmission Date: 20140515
  Serious: Yes (Hospitalization, Other)
  Sender: FDA-Public Use
  Company Number: 2013060070

PATIENT
  Age: 76 Year
  Sex: Female

DRUGS (2)
  1. MESALAMINE [Suspect]
     Indication: COLITIS
     Route: 054
  2. HYDROCORTISONE [Suspect]
     Indication: ABDOMINAL PAIN LOWER
     Route: 042

REACTIONS (2)
  - Rectal perforation [None]
  - Pneumoretroperitoneum [None]
